FAERS Safety Report 17984744 (Version 2)
Quarter: 2020Q3

REPORT INFORMATION
  Report Type: Spontaneous
  Country: GR (occurrence: GR)
  Receive Date: 20200706
  Receipt Date: 20200715
  Transmission Date: 20201103
  Serious: Yes (Hospitalization, Other)
  Sender: FDA-Public Use
  Company Number: GR-JNJFOC-20200640120

PATIENT
  Age: 83 Year
  Weight: 82 kg

DRUGS (2)
  1. LOPRESOR [Concomitant]
     Active Substance: METOPROLOL
     Indication: BLOOD CHOLESTEROL ABNORMAL
  2. XARELTO [Suspect]
     Active Substance: RIVAROXABAN
     Indication: ATRIAL FIBRILLATION
     Dosage: 20 MG
     Route: 048
     Dates: end: 202006

REACTIONS (1)
  - Mesenteric artery embolism [Recovering/Resolving]

NARRATIVE: CASE EVENT DATE: 20200607
